FAERS Safety Report 7066793-2 (Version None)
Quarter: 2010Q4

REPORT INFORMATION
  Report Type: 
  Country: None (occurrence: None)
  Receive Date: 20101027
  Receipt Date: 20101014
  Transmission Date: 20110411
  Serious: Yes (Hospitalization, Other)
  Sender: FDA-Public Use
  Company Number: FI-AMGEN-QUU411468

PATIENT

DRUGS (6)
  1. ENBREL [Suspect]
     Indication: PSORIATIC ARTHROPATHY
     Dosage: 25 MG, 2 TIMES/WK
     Route: 058
     Dates: end: 20100101
  2. ENBREL [Suspect]
     Indication: PSORIASIS
  3. DIFORMIN RETARD [Concomitant]
  4. CLOPIDOGREL [Concomitant]
  5. LIPITOR [Concomitant]
  6. SOMAC [Concomitant]

REACTIONS (6)
  - ASTHENIA [None]
  - FATIGUE [None]
  - MALAISE [None]
  - PARAESTHESIA [None]
  - PETIT MAL EPILEPSY [None]
  - VISUAL IMPAIRMENT [None]
